FAERS Safety Report 8610077-5 (Version None)
Quarter: 2012Q3

REPORT INFORMATION
  Report Type: 
  Country: None (occurrence: None)
  Receive Date: 20120822
  Receipt Date: 20120810
  Transmission Date: 20120928
  Serious: Yes (Hospitalization)
  Sender: FDA-Public Use
  Company Number: US-BIOGENIDEC-2012BI031637

PATIENT
  Age: 36 Year
  Sex: Female

DRUGS (2)
  1. TYSABRI [Suspect]
     Indication: MULTIPLE SCLEROSIS
     Route: 042
     Dates: start: 20080521, end: 20111227
  2. TYSABRI [Suspect]
     Route: 042
     Dates: start: 20120809

REACTIONS (3)
  - INTERVERTEBRAL DISC INJURY [None]
  - BACK PAIN [None]
  - ROAD TRAFFIC ACCIDENT [None]
